FAERS Safety Report 21950603 (Version 1)
Quarter: 2023Q1

REPORT INFORMATION
  Report Type: Spontaneous
  Country: US (occurrence: None)
  Receive Date: 20230203
  Receipt Date: 20230203
  Transmission Date: 20230417
  Serious: Yes (Other)
  Sender: FDA-Public Use
  Company Number: 2023A022974

PATIENT
  Age: 51 Year
  Sex: Female

DRUGS (2)
  1. FARXIGA [Suspect]
     Active Substance: DAPAGLIFLOZIN PROPANEDIOL
     Indication: Type 2 diabetes mellitus
     Route: 048
     Dates: start: 20221109, end: 20230121
  2. METFORMIN [Concomitant]
     Active Substance: METFORMIN HYDROCHLORIDE
     Indication: Type 2 diabetes mellitus
     Route: 048

REACTIONS (6)
  - Noninfective encephalitis [Unknown]
  - Diarrhoea [Recovered/Resolved with Sequelae]
  - Feeling drunk [Unknown]
  - Dysarthria [Unknown]
  - Disturbance in attention [Unknown]
  - Product use issue [Unknown]

NARRATIVE: CASE EVENT DATE: 20230121
